FAERS Safety Report 22266804 (Version 6)
Quarter: 2023Q4

REPORT INFORMATION
  Report Type: Report from Study
  Country: US (occurrence: US)
  Receive Date: 20230428
  Receipt Date: 20231013
  Transmission Date: 20240109
  Serious: Yes (Other)
  Sender: FDA-Public Use
  Company Number: US-JAZZ PHARMACEUTICALS-2022-US-017569

PATIENT
  Sex: Female

DRUGS (5)
  1. XYWAV [Suspect]
     Active Substance: CALCIUM OXYBATE\MAGNESIUM OXYBATE\POTASSIUM OXYBATE\SODIUM OXYBATE
     Indication: Narcolepsy
     Dosage: 4.5G AT BEDTIME
     Route: 048
  2. XYWAV [Suspect]
     Active Substance: CALCIUM OXYBATE\MAGNESIUM OXYBATE\POTASSIUM OXYBATE\SODIUM OXYBATE
     Indication: Hypersomnia
     Dosage: 6 GRAM, QD
     Route: 048
  3. XYWAV [Suspect]
     Active Substance: CALCIUM OXYBATE\MAGNESIUM OXYBATE\POTASSIUM OXYBATE\SODIUM OXYBATE
     Dosage: 4.5G TWICE NIGHTLY
     Dates: start: 20230503
  4. DULOXETINE HYDROCHLORIDE [Concomitant]
     Active Substance: DULOXETINE HYDROCHLORIDE
     Indication: Product used for unknown indication
     Dosage: UNK
     Dates: start: 20220417
  5. RESTASIS [Concomitant]
     Active Substance: CYCLOSPORINE
     Indication: Product used for unknown indication
     Dosage: 0.05 PERCENT
     Dates: start: 20230125

REACTIONS (13)
  - Nephrolithiasis [Unknown]
  - Illness [Unknown]
  - Acne [Recovered/Resolved]
  - Blood glucose decreased [Unknown]
  - Tachycardia [Unknown]
  - Hypersensitivity [Unknown]
  - Weight decreased [Unknown]
  - Microalbuminuria [Unknown]
  - Sensation of foreign body [Recovered/Resolved]
  - Rotator cuff syndrome [Recovered/Resolved]
  - Cyst [Recovered/Resolved]
  - Bedridden [Unknown]
  - COVID-19 [Unknown]
